FAERS Safety Report 13139064 (Version 1)
Quarter: 2017Q1

REPORT INFORMATION
  Report Type: Report from Study
  Country: FR (occurrence: FR)
  Receive Date: 20170123
  Receipt Date: 20170123
  Transmission Date: 20170428
  Serious: Yes (Death, Hospitalization)
  Sender: FDA-Public Use
  Company Number: FR-ACTELION-A-CH2016-146865

PATIENT
  Age: 76 Year
  Sex: Female
  Weight: 52.2 kg

DRUGS (16)
  1. MACITENTAN [Suspect]
     Active Substance: MACITENTAN
     Dosage: 10 MG, OD
     Route: 048
     Dates: start: 20161214, end: 20170111
  2. ADCIRCA [Suspect]
     Active Substance: TADALAFIL
     Dosage: 40 MG, OD
     Route: 048
     Dates: start: 20170117
  3. LOVENOX [Concomitant]
     Active Substance: ENOXAPARIN SODIUM
     Dosage: 40 MG, QD
  4. MACITENTAN [Suspect]
     Active Substance: MACITENTAN
     Dosage: 10 MG, OD
     Route: 048
     Dates: start: 20161214, end: 20170111
  5. PANTOPRAZOLE [Concomitant]
     Active Substance: PANTOPRAZOLE SODIUM
     Dosage: 20 MG, UNK
  6. ADCIRCA [Suspect]
     Active Substance: TADALAFIL
     Indication: PULMONARY ARTERIAL HYPERTENSION
     Dosage: 20 MG, OD
     Route: 048
     Dates: start: 20160926, end: 20161023
  7. FUMAFER [Concomitant]
     Active Substance: FERROUS FUMARATE
     Dosage: UNK, BID
  8. LASILIX [Concomitant]
     Active Substance: FUROSEMIDE
     Dosage: 40 MG, TID
  9. ALDACTONE [Concomitant]
     Active Substance: SPIRONOLACTONE
     Dosage: 25 MG, OD
  10. MACITENTAN [Suspect]
     Active Substance: MACITENTAN
     Indication: PULMONARY ARTERIAL HYPERTENSION
     Dosage: 10 MG, OD
     Route: 048
     Dates: start: 20160926
  11. ADCIRCA [Suspect]
     Active Substance: TADALAFIL
     Dosage: 40 MG, OD
     Route: 048
     Dates: start: 20161214, end: 20170113
  12. DIOSMINE [Concomitant]
     Active Substance: DIOSMIN
     Dosage: 300 MG, BID
  13. ADCIRCA [Suspect]
     Active Substance: TADALAFIL
     Dosage: 40 MG, OD
     Route: 048
     Dates: start: 20161023
  14. CALCIT [Concomitant]
     Dosage: UNK, QD
  15. MACITENTAN [Suspect]
     Active Substance: MACITENTAN
     Indication: PULMONARY ARTERIAL HYPERTENSION
     Dosage: 10 MG, OD
     Route: 048
     Dates: start: 20160926
  16. CALCIT [Concomitant]
     Dosage: UNK

REACTIONS (14)
  - Pulmonary arterial hypertension [Fatal]
  - Renal failure [Unknown]
  - Cardiac arrest [Fatal]
  - Chest pain [Unknown]
  - Dyspnoea [Not Recovered/Not Resolved]
  - Anaemia [Not Recovered/Not Resolved]
  - Cardiac failure [Unknown]
  - Haemoglobin decreased [Not Recovered/Not Resolved]
  - General physical health deterioration [Unknown]
  - Pulmonary embolism [Unknown]
  - Fluid retention [Not Recovered/Not Resolved]
  - Hypotension [Fatal]
  - Pleural effusion [Recovered/Resolved]
  - Oedema peripheral [Not Recovered/Not Resolved]

NARRATIVE: CASE EVENT DATE: 201610
